FAERS Safety Report 11215576 (Version 9)
Quarter: 2016Q2

REPORT INFORMATION
  Report Type: Report from Study
  Country: US (occurrence: US)
  Receive Date: 20150624
  Receipt Date: 20160617
  Transmission Date: 20160815
  Serious: Yes (Other)
  Sender: FDA-Public Use
  Company Number: US-SA-2015SA056324

PATIENT
  Age: 68 Year
  Sex: Female
  Weight: 160 kg

DRUGS (2)
  1. DOXYCYCLINE HYCLATE. [Concomitant]
     Active Substance: DOXYCYCLINE HYCLATE
  2. GOLD BOND ULTIMATE LOTION/CREAM GENERIC [Suspect]
     Active Substance: DIMETHICONE\PETROLATUM
     Indication: PSORIASIS
     Dosage: 1 TO 4 TIMES DAILY
     Route: 065
     Dates: start: 20150329, end: 20150401

REACTIONS (25)
  - Skin haemorrhage [Unknown]
  - Chills [Unknown]
  - Gait disturbance [Unknown]
  - Hyperaesthesia [Not Recovered/Not Resolved]
  - Application site pain [Not Recovered/Not Resolved]
  - Psoriasis [Not Recovered/Not Resolved]
  - Inappropriate schedule of drug administration [Unknown]
  - Skin ulcer [Unknown]
  - Application site reaction [Not Recovered/Not Resolved]
  - Oedema peripheral [Unknown]
  - Tremor [Unknown]
  - Dry skin [Not Recovered/Not Resolved]
  - Pruritus [Recovered/Resolved]
  - Erythema [Not Recovered/Not Resolved]
  - Pain [Not Recovered/Not Resolved]
  - Skin fissures [Unknown]
  - Application site discomfort [Unknown]
  - Pain [Not Recovered/Not Resolved]
  - Insomnia [Unknown]
  - Feeling hot [Not Recovered/Not Resolved]
  - Erythema [Unknown]
  - Skin exfoliation [Not Recovered/Not Resolved]
  - Application site scar [Not Recovered/Not Resolved]
  - Pyrexia [Recovering/Resolving]
  - Application site burn [Not Recovered/Not Resolved]

NARRATIVE: CASE EVENT DATE: 201504
